FAERS Safety Report 7493530-X (Version None)
Quarter: 2011Q2

REPORT INFORMATION
  Report Type: 
  Country: None (occurrence: None)
  Receive Date: 20110520
  Receipt Date: 20110516
  Transmission Date: 20111010
  Serious: Yes (Other)
  Sender: FDA-Public Use
  Company Number: US-PFIZER INC-2011104699

PATIENT
  Sex: Male
  Weight: 156 kg

DRUGS (5)
  1. AMLODIPINE BESYLATE/VALSARTAN [Concomitant]
     Indication: HYPERTENSION
     Dosage: UNK
  2. LIPITOR [Suspect]
     Indication: BLOOD CHOLESTEROL INCREASED
     Dosage: 40 MG, 1X/DAY
     Route: 048
     Dates: start: 20110101
  3. LIPITOR [Suspect]
     Dosage: 40 MG, UNK
  4. EFFEXOR [Concomitant]
     Indication: DEPRESSION
     Dosage: UNK
  5. LIPITOR [Suspect]
     Dosage: 80 MG, 1X/DAY
     Dates: start: 20110512, end: 20110515

REACTIONS (11)
  - SURGERY [None]
  - DRUG DOSE OMISSION [None]
  - MYALGIA [None]
  - INITIAL INSOMNIA [None]
  - MUSCULAR WEAKNESS [None]
  - ARTHRALGIA [None]
  - BLOOD CHOLESTEROL INCREASED [None]
  - RESPIRATORY RATE INCREASED [None]
  - MUSCULOSKELETAL CHEST PAIN [None]
  - OEDEMA PERIPHERAL [None]
  - PAIN [None]
